FAERS Safety Report 11597809 (Version 1)
Quarter: 2015Q4

REPORT INFORMATION
  Report Type: Spontaneous
  Country: US (occurrence: None)
  Receive Date: 20151006
  Receipt Date: 20151006
  Transmission Date: 20160304
  Serious: Yes (Other)
  Sender: FDA-Public Use
  Company Number: US-MDT-ADR-2015-01907

PATIENT
  Age: 58 Year
  Sex: Female

DRUGS (2)
  1. BACLOFEN INTRATHECAL 0.1 MG/ML [Suspect]
     Active Substance: BACLOFEN
     Indication: PAIN
     Dosage: 0.05 MG/DAY
  2. MORPHINE SULFATE INTRATHECAL 25 MG/ML [Suspect]
     Active Substance: MORPHINE SULFATE
     Indication: PAIN
     Dosage: 12.5 MG/DAY

REACTIONS (9)
  - Pain [None]
  - Skin discolouration [None]
  - Blood pressure diastolic decreased [None]
  - Incision site hypoaesthesia [None]
  - Medical device site infection [None]
  - Osteomyelitis [None]
  - Intervertebral discitis [None]
  - Adverse drug reaction [None]
  - Staphylococcal infection [None]
